FAERS Safety Report 8289139-0 (Version None)
Quarter: 2012Q1

REPORT INFORMATION
  Report Type: 
  Country: None (occurrence: None)
  Receive Date: 20120321
  Receipt Date: 20111219
  Transmission Date: 20120608
  Serious: Yes (Other)
  Sender: FDA-Public Use
  Company Number: 902969

PATIENT
  Sex: Male

DRUGS (1)
  1. BACLOFEN [Suspect]

REACTIONS (2)
  - HALLUCINATION [None]
  - DELIRIUM [None]
